FAERS Safety Report 24689330 (Version 1)
Quarter: 2024Q4

REPORT INFORMATION
  Report Type: Report from Study
  Country: US (occurrence: US)
  Receive Date: 20241203
  Receipt Date: 20241203
  Transmission Date: 20250115
  Serious: Yes (Hospitalization, Other)
  Sender: ALEXION PHARMACEUTICALS
  Company Number: US-AstraZeneca-CH-00756976A

PATIENT
  Weight: 39 kg

DRUGS (4)
  1. SELUMETINIB [Suspect]
     Active Substance: SELUMETINIB
     Indication: Brain neoplasm malignant
  2. SELUMETINIB [Suspect]
     Active Substance: SELUMETINIB
  3. SELUMETINIB [Suspect]
     Active Substance: SELUMETINIB
  4. SELUMETINIB [Suspect]
     Active Substance: SELUMETINIB

REACTIONS (2)
  - Pneumonia [Unknown]
  - Rash [Unknown]
